FAERS Safety Report 9900222 (Version 1)
Quarter: 2014Q1

REPORT INFORMATION
  Report Type: Report from Study
  Country: CA (occurrence: CA)
  Receive Date: 20140215
  Receipt Date: 20140215
  Transmission Date: 20141002
  Serious: Yes (Death, Hospitalization, Other)
  Sender: FDA-Public Use
  Company Number: CA-ROCHE-1347495

PATIENT
  Age: 62 Year
  Sex: Male

DRUGS (8)
  1. PEGASYS [Suspect]
     Indication: CHRONIC HEPATITIS C
     Route: 058
     Dates: start: 20140122
  2. COPEGUS [Suspect]
     Indication: CHRONIC HEPATITIS C
     Dosage: 42 TABLETS/WEEK
     Route: 048
  3. INCIVEK [Suspect]
     Indication: CHRONIC HEPATITIS C
     Route: 048
  4. SPIRIVA [Concomitant]
     Indication: ASTHMA
     Route: 065
  5. SALBUTAMOL [Concomitant]
     Indication: ASTHMA
     Route: 065
  6. FUROSEMIDE [Concomitant]
     Route: 065
  7. SPIRONOLACTONE [Concomitant]
     Route: 065
  8. OXYCONTIN [Concomitant]
     Indication: PAIN
     Route: 065

REACTIONS (4)
  - Cardiac arrest [Fatal]
  - Abdominal pain [Unknown]
  - Haematemesis [Unknown]
  - Varices oesophageal [Unknown]
